FAERS Safety Report 25268725 (Version 1)
Quarter: 2025Q2

REPORT INFORMATION
  Report Type: Spontaneous
  Country: NL (occurrence: NL)
  Receive Date: 20250505
  Receipt Date: 20250505
  Transmission Date: 20250717
  Serious: Yes (Hospitalization, Other)
  Sender: MYLAN
  Company Number: None

PATIENT
  Age: 64 Year
  Sex: Female
  Weight: 67 kg

DRUGS (1)
  1. DOXAZOSIN [Suspect]
     Active Substance: DOXAZOSIN MESYLATE
     Indication: Hypertension
     Dosage: 8 MILLIGRAM, QD, 1X DAILY
     Dates: start: 20180401, end: 20250419

REACTIONS (2)
  - Urinary incontinence [Not Recovered/Not Resolved]
  - Constipation [Not Recovered/Not Resolved]
